FAERS Safety Report 19194174 (Version 1)
Quarter: 2021Q2

REPORT INFORMATION
  Report Type: Spontaneous
  Country: US (occurrence: US)
  Receive Date: 20210426
  Receipt Date: 20210426
  Transmission Date: 20210717
  Serious: Yes (Death, Hospitalization)
  Sender: FDA-Public Use
  Company Number: None

PATIENT
  Age: 84 Year
  Sex: Female
  Weight: 59 kg

DRUGS (9)
  1. ALBUTEROL. [Concomitant]
     Active Substance: ALBUTEROL
  2. MVI [Concomitant]
     Active Substance: VITAMINS
  3. TYLENOL EXTRA STRENGTH [Concomitant]
     Active Substance: ACETAMINOPHEN
  4. DELTASONE [Concomitant]
     Active Substance: PREDNISONE
  5. CALCIUM CARBONATE/VITAMIN D3 [Concomitant]
     Active Substance: CALCIUM CARBONATE\CHOLECALCIFEROL
  6. IV HYDROCORTISONE [Suspect]
     Active Substance: HYDROCORTISONE
  7. ENTYVIO [Concomitant]
     Active Substance: VEDOLIZUMAB
  8. SYNTHROID [Concomitant]
     Active Substance: LEVOTHYROXINE SODIUM
  9. BUDESONIDE (UCERIS) [Concomitant]

REACTIONS (5)
  - Diarrhoea [None]
  - Respiratory failure [None]
  - Pneumonia [None]
  - Rectal haemorrhage [None]
  - Aspiration [None]

NARRATIVE: CASE EVENT DATE: 20200824
